FAERS Safety Report 19488143 (Version 2)
Quarter: 2021Q3

REPORT INFORMATION
  Report Type: Spontaneous
  Country: JP (occurrence: JP)
  Receive Date: 20210702
  Receipt Date: 20210806
  Transmission Date: 20211014
  Serious: Yes (Death, Other)
  Sender: FDA-Public Use
  Company Number: JP-ABBVIE-21P-087-3975913-00

PATIENT
  Age: 90 Year
  Sex: Male

DRUGS (1)
  1. LEUPLIN [Suspect]
     Active Substance: LEUPROLIDE ACETATE
     Indication: PROSTATE CANCER
     Dosage: 3.75 MILLIGRAM, Q4WEEKS
     Route: 058
     Dates: end: 202105

REACTIONS (2)
  - Marasmus [Fatal]
  - Prostate cancer [Fatal]

NARRATIVE: CASE EVENT DATE: 202106
